FAERS Safety Report 5303499-1 (Version None)
Quarter: 2007Q2

REPORT INFORMATION
  Report Type: 
  Country: None (occurrence: None)
  Receive Date: 20070420
  Receipt Date: 20070412
  Transmission Date: 20071010
  Serious: Yes (Other)
  Sender: FDA-Public Use
  Company Number: GB-PFIZER INC-2007030381

PATIENT
  Sex: Male
  Weight: 74 kg

DRUGS (5)
  1. ATORVASTATIN CALCIUM [Suspect]
     Indication: HYPOLIPIDAEMIA
     Route: 048
  2. ATENOLOL [Concomitant]
     Route: 048
  3. BENDROFLUMETHIAZIDE [Concomitant]
     Route: 048
  4. FELODIPINE [Concomitant]
  5. WARFARIN SODIUM [Concomitant]
     Route: 048

REACTIONS (1)
  - CRYPTOGENIC ORGANISING PNEUMONIA [None]
